FAERS Safety Report 9857203 (Version 1)
Quarter: 2014Q1

REPORT INFORMATION
  Report Type: Spontaneous
  Country: US (occurrence: US)
  Receive Date: 20140130
  Receipt Date: 20140130
  Transmission Date: 20141002
  Serious: Yes (Hospitalization)
  Sender: FDA-Public Use
  Company Number: US-GILEAD-2014-0093172

PATIENT
  Age: 39 Year
  Sex: Female

DRUGS (2)
  1. CAYSTON [Suspect]
     Indication: CYSTIC FIBROSIS LUNG
     Dosage: 75 MG, UNK
     Route: 055
     Dates: start: 20140115, end: 20140115
  2. CAYSTON [Suspect]
     Dosage: 75 MG, UNK
     Route: 055
     Dates: start: 20140125

REACTIONS (1)
  - Haemoptysis [Recovered/Resolved]
